FAERS Safety Report 9192576 (Version 1)
Quarter: 2013Q1

REPORT INFORMATION
  Report Type: Spontaneous
  Country: US (occurrence: US)
  Receive Date: 20130327
  Receipt Date: 20130327
  Transmission Date: 20140127
  Serious: No
  Sender: FDA-Public Use
  Company Number: US-PFIZER INC-2013099512

PATIENT
  Sex: Female

DRUGS (5)
  1. CHANTIX [Suspect]
     Indication: SMOKING CESSATION THERAPY
     Dosage: 0.5 MG, 1X/DAY
  2. CHANTIX [Suspect]
     Dosage: 0.5 MG, 1X/DAY
     Dates: start: 201303
  3. TRUVADA [Concomitant]
     Indication: HIV TEST POSITIVE
     Dosage: UNK
  4. NORVIR [Concomitant]
     Indication: HIV TEST POSITIVE
     Dosage: UNK
  5. REYATAZ [Concomitant]
     Indication: HIV TEST POSITIVE
     Dosage: UNK

REACTIONS (4)
  - Weight decreased [Unknown]
  - Anxiety [Unknown]
  - Restlessness [Unknown]
  - Dysgeusia [Unknown]
